FAERS Safety Report 8015366-3 (Version None)
Quarter: 2011Q4

REPORT INFORMATION
  Report Type: 
  Country: None (occurrence: None)
  Receive Date: 20111230
  Receipt Date: 20111220
  Transmission Date: 20120403
  Serious: Yes (Hospitalization)
  Sender: FDA-Public Use
  Company Number: CA-ELI_LILLY_AND_COMPANY-CA201111005143

PATIENT
  Age: 71 Year
  Sex: Female

DRUGS (15)
  1. ZINC [Concomitant]
     Dosage: 25 MG, UNK
  2. RISEDRONATE SODIUM [Concomitant]
     Dosage: 35 MG, WEEKLY (1/W)
  3. MULTI-VITAMIN [Concomitant]
  4. METHOTREXATE [Concomitant]
     Dosage: 25 MG, WEEKLY (1/W)
  5. LASIX [Concomitant]
     Dosage: UNK, PRN
  6. METAMUCIL-2 [Concomitant]
  7. FUROSEMIDE [Concomitant]
     Dosage: UNK, PRN
  8. FOLIC ACID [Concomitant]
     Dosage: 5 MG, WEEKLY (1/W)
  9. FORTEO [Suspect]
     Dosage: 20 UG, QD
     Route: 058
     Dates: start: 20110922
  10. PLAQUENIL [Concomitant]
     Dosage: 400 MG, UNK
  11. CALCIUM ACETATE [Concomitant]
     Dosage: 1800 MG, UNK
  12. VITAMIN D [Concomitant]
     Dosage: 50000 IU, WEEKLY (1/W)
  13. FORTEO [Suspect]
     Indication: OSTEOPOROSIS
     Dosage: 20 UG, QD
     Route: 058
     Dates: start: 20110331, end: 20110901
  14. FENTANYL [Concomitant]
     Dosage: 15 MG, 2/W
  15. BRICANYL [Concomitant]

REACTIONS (1)
  - OESOPHAGEAL ACHALASIA [None]
